FAERS Safety Report 14222680 (Version 1)
Quarter: 2017Q4

REPORT INFORMATION
  Report Type: Spontaneous
  Country: US (occurrence: US)
  Receive Date: 20171124
  Receipt Date: 20171124
  Transmission Date: 20180321
  Serious: No
  Sender: FDA-Public Use
  Company Number: US-JNJFOC-20171026469

PATIENT
  Sex: Male

DRUGS (3)
  1. GILOTRIF [Concomitant]
     Active Substance: AFATINIB
     Indication: CHEMOTHERAPY
     Route: 065
  2. IMODIUM A-D [Suspect]
     Active Substance: LOPERAMIDE HYDROCHLORIDE
     Route: 065
  3. IMODIUM A-D [Suspect]
     Active Substance: LOPERAMIDE HYDROCHLORIDE
     Indication: GASTROINTESTINAL DISORDER
     Dosage: 4 TABLETS EVERY DAY
     Route: 065

REACTIONS (1)
  - Intentional product misuse [Unknown]
